FAERS Safety Report 4352923-X (Version None)
Quarter: 2004Q2

REPORT INFORMATION
  Report Type: 
  Country: None (occurrence: None)
  Receive Date: 20040430
  Receipt Date: 20040310
  Transmission Date: 20050107
  Serious: No
  Sender: FDA-Public Use
  Company Number: 205227

PATIENT
  Age: 51 Year
  Sex: Female
  Weight: 78.9 kg

DRUGS (8)
  1. XOLAIR [Suspect]
     Indication: ASTHMA
     Dosage: 225 MG, Q2W, SUBCUTANEOUS
     Route: 058
     Dates: start: 20040217, end: 20040301
  2. VOLTAREN [Concomitant]
  3. ALBUTEROL (ALBUTEROL, ALBUTEROL SULFATE) [Concomitant]
  4. FORADIL [Concomitant]
  5. CELEBREX [Concomitant]
  6. ZOMIG [Concomitant]
  7. IMITREX [Concomitant]
  8. AMERGE [Concomitant]

REACTIONS (1)
  - MIGRAINE [None]
